FAERS Safety Report 7274512-X (Version None)
Quarter: 2011Q1

REPORT INFORMATION
  Report Type: 
  Country: None (occurrence: None)
  Receive Date: 20110204
  Receipt Date: 20110125
  Transmission Date: 20110831
  Serious: Yes (Other)
  Sender: FDA-Public Use
  Company Number: JP-ASTRAZENECA-2011SE03784

PATIENT
  Age: 61 Year
  Sex: Male
  Weight: 85 kg

DRUGS (7)
  1. GEFANIL [Suspect]
     Indication: GASTRODUODENAL ULCER
     Route: 048
     Dates: start: 20100320, end: 20110107
  2. ESOMEPRAZOLE MAGNESIUM [Suspect]
     Indication: GASTRODUODENAL ULCER
     Route: 048
     Dates: start: 20100320, end: 20110107
  3. LIVALO [Concomitant]
     Indication: DYSLIPIDAEMIA
     Route: 048
     Dates: start: 20090612
  4. ASPIRIN [Suspect]
     Indication: GASTRODUODENAL ULCER
     Route: 048
     Dates: start: 20090126
  5. DIOVAN [Concomitant]
     Indication: HYPERTENSION
     Route: 048
     Dates: start: 20090410
  6. AMLODIPINE [Concomitant]
     Indication: HYPERTENSION
     Route: 048
     Dates: start: 20091002
  7. LANSOPRAZOLE [Concomitant]
     Indication: GASTRITIS
     Route: 048
     Dates: start: 20110107, end: 20110120

REACTIONS (1)
  - GASTRIC CANCER [None]
